FAERS Safety Report 5092137-1 (Version None)
Quarter: 2006Q3

REPORT INFORMATION
  Report Type: 
  Country: None (occurrence: None)
  Receive Date: 20060825
  Receipt Date: 20060823
  Transmission Date: 20061208
  Serious: Yes (Hospitalization)
  Sender: FDA-Public Use
  Company Number: TCI2006A02124

PATIENT
  Age: 70 Year
  Sex: Male

DRUGS (7)
  1. LEUPROLIDE ACETATE [Suspect]
     Indication: PROSTATE CANCER
     Dosage: 3.75 MG (3.75 MG, 1 IN 28 D) SUBCUGTANEOUS
     Route: 058
     Dates: start: 20050801, end: 20060530
  2. CASODEX [Suspect]
     Indication: PROSTATE CANCER
     Dosage: 80 MG (80 MG, 1 IN 1 D) PER ORAL
     Route: 048
     Dates: start: 20050801
  3. WARFARIN (WARFARIN POTASSIUM) (TABLETS) [Concomitant]
  4. PREDNISOLONE [Concomitant]
  5. LANIRAPID (METILDIGOXIN) (TABLETS) [Concomitant]
  6. AMLODIN (AMLODIPINE BESILATE) (TABLETS) [Concomitant]
  7. CIBENOL (CIBENZOLINE SUCCINATE) (TABLETS) [Concomitant]

REACTIONS (1)
  - CRYPTOGENIC ORGANISING PNEUMONIA [None]
